FAERS Safety Report 9673091 (Version 1)
Quarter: 2013Q4

REPORT INFORMATION
  Report Type: Spontaneous
  Country: US (occurrence: US)
  Receive Date: 20131106
  Receipt Date: 20131106
  Transmission Date: 20140711
  Serious: Yes (Other)
  Sender: FDA-Public Use
  Company Number: US-AMGEN-USASP2013071145

PATIENT
  Age: 50 Year
  Sex: Female

DRUGS (1)
  1. ENBREL [Suspect]
     Indication: RHEUMATOID ARTHRITIS
     Dosage: 25 MG, 2 TIMES/WK
     Route: 065
     Dates: start: 20010101

REACTIONS (9)
  - Tooth infection [Recovered/Resolved]
  - Fibromyalgia [Not Recovered/Not Resolved]
  - Intervertebral disc disorder [Not Recovered/Not Resolved]
  - Injection site bruising [Not Recovered/Not Resolved]
  - Nodule [Unknown]
  - Tooth disorder [Not Recovered/Not Resolved]
  - Sensitivity of teeth [Recovered/Resolved]
  - Scoliosis [Not Recovered/Not Resolved]
  - Injection site pain [Not Recovered/Not Resolved]
